FAERS Safety Report 10197287 (Version 1)
Quarter: 2014Q2

REPORT INFORMATION
  Report Type: Spontaneous
  Country: FR (occurrence: FR)
  Receive Date: 20140527
  Receipt Date: 20140527
  Transmission Date: 20141212
  Serious: Yes (Death)
  Sender: FDA-Public Use
  Company Number: FR-GLAXOSMITHKLINE-B0996444A

PATIENT
  Age: 64 Year
  Sex: 0

DRUGS (2)
  1. VOTRIENT [Suspect]
     Indication: RENAL CANCER METASTATIC
     Route: 065
  2. ANTIVITAMINS K [Concomitant]
     Route: 065

REACTIONS (1)
  - Sudden death [Fatal]
